FAERS Safety Report 10740266 (Version 1)
Quarter: 2015Q1

REPORT INFORMATION
  Report Type: Report from Study
  Country: US (occurrence: US)
  Receive Date: 20150127
  Receipt Date: 20150127
  Transmission Date: 20150721
  Serious: Yes (Death, Hospitalization, Other)
  Sender: FDA-Public Use
  Company Number: US-BIOGENIDEC-2015BI006785

PATIENT
  Age: 76 Year
  Sex: Male

DRUGS (1)
  1. TYSABRI [Suspect]
     Active Substance: NATALIZUMAB
     Indication: MULTIPLE SCLEROSIS
     Route: 042
     Dates: start: 20081231, end: 20141204

REACTIONS (17)
  - Disorientation [Unknown]
  - Memory impairment [Unknown]
  - Death [Fatal]
  - Hepatic failure [Fatal]
  - Pneumonia [Fatal]
  - Screaming [Unknown]
  - Thinking abnormal [Unknown]
  - Sepsis [Fatal]
  - Cardiac disorder [Fatal]
  - Skin lesion [Unknown]
  - Acute kidney injury [Fatal]
  - Dehydration [Fatal]
  - Central nervous system infection [Fatal]
  - Nervous system disorder [Fatal]
  - Urinary tract infection [Fatal]
  - Pulseless electrical activity [Unknown]
  - Blister [Unknown]

NARRATIVE: CASE EVENT DATE: 2012
